FAERS Safety Report 12628606 (Version 2)
Quarter: 2016Q4

REPORT INFORMATION
  Report Type: Spontaneous
  Country: US (occurrence: US)
  Receive Date: 20160808
  Receipt Date: 20161123
  Transmission Date: 20170207
  Serious: No
  Sender: FDA-Public Use
  Company Number: US-JAZZ-2016-US-003959

PATIENT
  Sex: Female

DRUGS (31)
  1. XYREM [Suspect]
     Active Substance: SODIUM OXYBATE
     Indication: NARCOLEPSY
     Dosage: 2.25 G, BID
     Route: 048
     Dates: start: 201101, end: 201103
  2. EPINEPHRINE. [Concomitant]
     Active Substance: EPINEPHRINE
  3. MARCAINE [Concomitant]
     Active Substance: BUPIVACAINE HYDROCHLORIDE
  4. CALMS FORTE [Concomitant]
  5. VENLAFAXINE HCL [Concomitant]
     Active Substance: VENLAFAXINE HYDROCHLORIDE
  6. CATS CLAW [Concomitant]
  7. L-GLUTAMINE [Concomitant]
  8. MARSHMALLOW [Concomitant]
     Active Substance: ALCOHOL
  9. XYREM [Suspect]
     Active Substance: SODIUM OXYBATE
     Dosage: 4.5 G, BID
     Route: 048
     Dates: start: 201103
  10. KIRKLAND SIGNATURE ALLER TEC ALLERGY [Concomitant]
     Active Substance: CETIRIZINE HYDROCHLORIDE
  11. CHOLINE CITRATE [Concomitant]
  12. MAGNESIUM OXIDE. [Concomitant]
     Active Substance: MAGNESIUM OXIDE
  13. ELM [Concomitant]
     Active Substance: ELM
  14. VICODIN [Concomitant]
     Active Substance: ACETAMINOPHEN\HYDROCODONE BITARTRATE
  15. VITAMIN D [Concomitant]
     Active Substance: CHOLECALCIFEROL
  16. MIRENA [Concomitant]
     Active Substance: LEVONORGESTREL
  17. LAMICTAL XR [Concomitant]
     Active Substance: LAMOTRIGINE
  18. ALOE VERA [Concomitant]
     Active Substance: ALOE VERA LEAF
  19. CALCIUM + MAGNESIUM [Concomitant]
  20. PROZAC [Concomitant]
     Active Substance: FLUOXETINE HYDROCHLORIDE
  21. KEPPRA [Concomitant]
     Active Substance: LEVETIRACETAM
  22. AZO [Concomitant]
     Active Substance: PHENAZOPYRIDINE HYDROCHLORIDE
     Indication: PRODUCT USED FOR UNKNOWN INDICATION
  23. OFLOXACIN. [Concomitant]
     Active Substance: OFLOXACIN
  24. SEPTOCAINE [Concomitant]
     Active Substance: ARTICAINE HYDROCHLORIDE\EPINEPHRINE BITARTRATE
  25. VITAMIN B12 [Concomitant]
     Active Substance: CYANOCOBALAMIN
  26. LICORICE ROOT [Concomitant]
     Active Substance: LICORICE
  27. GLUCOSAMINE [Concomitant]
     Active Substance: GLUCOSAMINE
  28. ZINC CHELATE [Concomitant]
  29. MULTI VITA BETS WITH FLUORIDE [Concomitant]
  30. FISH OIL 1-A-DAY + VITAMIN D3 [Concomitant]
  31. LECITHIN [Concomitant]
     Active Substance: LECITHIN

REACTIONS (2)
  - Pollakiuria [Unknown]
  - Ovarian cyst [Unknown]
